FAERS Safety Report 7924374-X (Version None)
Quarter: 2011Q4

REPORT INFORMATION
  Report Type: 
  Country: None (occurrence: None)
  Receive Date: 20111117
  Receipt Date: 20110321
  Transmission Date: 20120403
  Serious: No
  Sender: FDA-Public Use
  Company Number: US-AMGEN-USASP2011015383

PATIENT
  Age: 55 Year
  Sex: Female

DRUGS (2)
  1. ENBREL [Suspect]
     Indication: RHEUMATOID ARTHRITIS
     Dosage: 50 MG, QWK
     Dates: start: 20110106, end: 20110301
  2. METHOTREXATE [Concomitant]
     Dates: start: 20110101

REACTIONS (2)
  - SYNOVIAL CYST [None]
  - THERAPEUTIC RESPONSE DECREASED [None]
